FAERS Safety Report 11740895 (Version 1)
Quarter: 2015Q4

REPORT INFORMATION
  Report Type: Spontaneous
  Country: JP (occurrence: JP)
  Receive Date: 20151115
  Receipt Date: 20151115
  Transmission Date: 20160304
  Serious: Yes (Other)
  Sender: FDA-Public Use
  Company Number: JP-EMD SERONO-8052368

PATIENT
  Sex: Male

DRUGS (1)
  1. SEROPHENE [Suspect]
     Active Substance: CLOMIPHENE CITRATE
     Route: 050

REACTIONS (3)
  - Dural arteriovenous fistula [Unknown]
  - Apgar score low [Unknown]
  - Cardiac failure [Unknown]
